FAERS Safety Report 5265477-0 (Version None)
Quarter: 2007Q1

REPORT INFORMATION
  Report Type: 
  Country: None (occurrence: None)
  Receive Date: 20070314
  Receipt Date: 20070302
  Transmission Date: 20070707
  Serious: Yes (Hospitalization)
  Sender: FDA-Public Use
  Company Number: FR-PFIZER INC-2007017361

PATIENT
  Age: 42 Year
  Sex: Male

DRUGS (10)
  1. AZADOSE [Suspect]
     Dosage: DAILY DOSE:1.2GRAM-FREQ:EVERY WEEK
     Route: 048
  2. VIDEX [Suspect]
     Dosage: DAILY DOSE:400MG-FREQ:EVERY DAY
     Route: 048
     Dates: start: 20060131, end: 20061219
  3. NORVIR [Suspect]
     Dosage: TEXT:2 DF-FREQ:EVERY DAY
     Route: 048
     Dates: start: 20030915, end: 20061219
  4. EPIVIR [Suspect]
     Dosage: DAILY DOSE:150MG-FREQ:EVERY DAY
     Route: 048
     Dates: start: 20030915, end: 20061219
  5. FUZEON [Suspect]
     Dosage: TEXT:1.8 G-FREQ:EVERY DAY
     Route: 048
     Dates: start: 20030915, end: 20061219
  6. TMC-114 [Suspect]
     Dosage: TEXT:4 DF-FREQ:EVERY DAY
     Route: 048
     Dates: start: 20060131, end: 20061219
  7. COMBIVIR [Concomitant]
     Dates: start: 20030305, end: 20030101
  8. CORTANCYL [Concomitant]
  9. TRAMADOL HCL [Concomitant]
  10. RIVOTRIL [Concomitant]

REACTIONS (3)
  - HEPATITIS [None]
  - LACTIC ACIDOSIS [None]
  - PANCREATITIS [None]
